FAERS Safety Report 24564410 (Version 1)
Quarter: 2024Q4

REPORT INFORMATION
  Report Type: Spontaneous
  Country: CN (occurrence: CN)
  Receive Date: 20241030
  Receipt Date: 20241030
  Transmission Date: 20250115
  Serious: Yes (Other)
  Sender: Steriscience PTE
  Company Number: CN-STERISCIENCE B.V.-2024-ST-001782

PATIENT
  Age: 38 Year
  Sex: Male

DRUGS (1)
  1. KETOROLAC [Suspect]
     Active Substance: KETOROLAC TROMETHAMINE
     Indication: Product used for unknown indication
     Dosage: UNK, INJECTION
     Route: 065

REACTIONS (3)
  - Mucocutaneous disorder [Unknown]
  - Respiratory disorder [Unknown]
  - Hypersensitivity [Unknown]
